FAERS Safety Report 6272791-9 (Version None)
Quarter: 2009Q3

REPORT INFORMATION
  Report Type: 
  Country: None (occurrence: None)
  Receive Date: 20090717
  Receipt Date: 20090716
  Transmission Date: 20100115
  Serious: Yes (Death, Hospitalization, Other)
  Sender: FDA-Public Use
  Company Number: US-ASTRAZENECA-2009UW19258

PATIENT
  Age: 49 Year
  Sex: Male

DRUGS (6)
  1. SYMBICORT [Suspect]
     Route: 055
     Dates: start: 20070801
  2. AMBIEN [Concomitant]
  3. ALBUTEROL [Concomitant]
     Indication: CHRONIC OBSTRUCTIVE PULMONARY DISEASE
  4. ATENOLOL [Concomitant]
     Indication: HYPERTENSION
     Route: 048
     Dates: start: 20080801
  5. DIOVAN [Concomitant]
     Indication: HYPERTENSION
     Route: 048
     Dates: start: 20060101
  6. RISPERDAL [Concomitant]
     Indication: BIPOLAR DISORDER

REACTIONS (5)
  - BLOOD SODIUM DECREASED [None]
  - CARDIOMEGALY [None]
  - COMPLETED SUICIDE [None]
  - HYPERTENSION [None]
  - MULTIPLE DRUG OVERDOSE INTENTIONAL [None]
